FAERS Safety Report 5147348-3 (Version None)
Quarter: 2006Q4

REPORT INFORMATION
  Report Type: 
  Country: None (occurrence: None)
  Receive Date: 20061103
  Receipt Date: 20061020
  Transmission Date: 20070319
  Serious: Yes (Other)
  Sender: FDA-Public Use
  Company Number: 2006S1009863

PATIENT
  Age: 41 Year
  Sex: Male
  Weight: 100.6985 kg

DRUGS (13)
  1. FENTANYL TRANSDERMAL SYSTEM [Suspect]
     Indication: DIABETIC NEUROPATHY
     Dosage: 25 UG/HR; Q3D;TDER
     Route: 062
     Dates: start: 20061007, end: 20061008
  2. RITONAVIR [Concomitant]
  3. ATAZANAVIR SULFATE [Concomitant]
  4. TENOFOVIR DISOPROXIL [Concomitant]
  5. FUMARATE [Concomitant]
  6. CLONIDINE HCL [Concomitant]
  7. HYDRALAZINE HCL [Concomitant]
  8. CO-DIOVAN [Concomitant]
  9. METFORMIN [Concomitant]
  10. MIRTAZAPINE [Concomitant]
  11. CLONAZEPAM [Concomitant]
  12. ACETYLSALICYLIC ACID SRT [Concomitant]
  13. VITAMINS [Concomitant]

REACTIONS (1)
  - MUSCLE SPASMS [None]
